FAERS Safety Report 8499450 (Version 2)
Quarter: 2015Q2

REPORT INFORMATION
  Report Type: Report from Study
  Country: CH (occurrence: CH)
  Receive Date: 20120409
  Receipt Date: 20150410
  Transmission Date: 20150821
  Serious: Yes (Death, Other)
  Sender: FDA-Public Use
  Company Number: SZ-ASTRAZENECA-2012SE21906

PATIENT
  Age: 66 Year
  Sex: Female

DRUGS (13)
  1. CLAMOXYL [Interacting]
     Active Substance: AMOXICILLIN\CLAVULANIC ACID
     Indication: BACTERIAL INFECTION
     Route: 040
     Dates: start: 20120305
  2. ZOVIRAX [Suspect]
     Active Substance: ACYCLOVIR
     Indication: ENCEPHALITIS VIRAL
     Route: 040
     Dates: start: 20120229, end: 20120304
  3. SPIRICORT [Concomitant]
     Active Substance: PREDNISOLONE
     Route: 048
     Dates: end: 20120229
  4. PANTOZOL [Concomitant]
     Active Substance: PANTOPRAZOLE SODIUM
     Route: 048
     Dates: end: 20120229
  5. METHOTREXATE [Interacting]
     Active Substance: METHOTREXATE
     Indication: PERIPHERAL T-CELL LYMPHOMA UNSPECIFIED
     Dosage: SINGLE ADMINISTRATION OF 5500 MG, NON-AZ PRODUCT
     Route: 041
     Dates: start: 20120303, end: 20120303
  6. FRAGMIN [Suspect]
     Active Substance: DALTEPARIN SODIUM
     Indication: NEOPLASM PROPHYLAXIS
     Route: 058
     Dates: start: 20120229, end: 20120304
  7. CLAMOXYL [Interacting]
     Active Substance: AMOXICILLIN\CLAVULANIC ACID
     Indication: BACTERIAL INFECTION
     Route: 040
     Dates: start: 20120229
  8. ROCEPHIN [Suspect]
     Active Substance: CEFTRIAXONE SODIUM
     Indication: BACTERIAL INFECTION
     Route: 040
     Dates: start: 20120229, end: 20120303
  9. NOVALGIN [Suspect]
     Active Substance: METAMIZOLE SODIUM
     Indication: PYREXIA
     Route: 040
     Dates: start: 20120229, end: 20120303
  10. ESOMEP [Suspect]
     Active Substance: ESOMEPRAZOLE
     Route: 042
     Dates: start: 20120229
  11. CIPRALEX [Concomitant]
     Active Substance: ESCITALOPRAM OXALATE
     Route: 048
     Dates: end: 20120229
  12. LEUCOVORIN [Concomitant]
     Active Substance: LEUCOVORIN
     Route: 042
     Dates: start: 20120304
  13. CARBOXYPEPTIDASE G2 [Concomitant]
     Route: 042
     Dates: start: 20120304, end: 20120304

REACTIONS (8)
  - Drug level increased [Fatal]
  - Clostridium difficile colitis [Fatal]
  - Sepsis [Fatal]
  - Liver injury [Fatal]
  - Sepsis [Fatal]
  - Drug interaction [Fatal]
  - Acute kidney injury [Fatal]
  - Pancytopenia [Fatal]

NARRATIVE: CASE EVENT DATE: 20120303
